FAERS Safety Report 4776792-9 (Version None)
Quarter: 2005Q3

REPORT INFORMATION
  Report Type: 
  Country: None (occurrence: None)
  Receive Date: 20050923
  Receipt Date: 20050919
  Transmission Date: 20060218
  Serious: Yes (Life-Threatening)
  Sender: FDA-Public Use
  Company Number: 2005SE05278

PATIENT
  Age: 62 Year

DRUGS (1)
  1. ATENOLOL [Suspect]

REACTIONS (1)
  - PANIC ATTACK [None]
